FAERS Safety Report 8011103-7 (Version None)
Quarter: 2011Q4

REPORT INFORMATION
  Report Type: 
  Country: None (occurrence: None)
  Receive Date: 20111228
  Receipt Date: 20111219
  Transmission Date: 20120403
  Serious: Yes (Hospitalization)
  Sender: FDA-Public Use
  Company Number: US-BAYER-2011-031504

PATIENT
  Age: 33 Year
  Sex: Female
  Weight: 61 kg

DRUGS (5)
  1. PERCOCET [Concomitant]
     Route: 048
  2. YAZ [Suspect]
     Indication: CONTRACEPTION
     Dosage: UNK
     Dates: start: 20090325, end: 20100301
  3. SYNTHROID [Concomitant]
     Route: 048
  4. ZOLOFT [Concomitant]
     Route: 048
  5. XANAX [Concomitant]
     Route: 048

REACTIONS (8)
  - PAIN [None]
  - BILIARY DYSKINESIA [None]
  - GALLBLADDER CHOLESTEROLOSIS [None]
  - ABDOMINAL PAIN UPPER [None]
  - CHOLECYSTITIS CHRONIC [None]
  - GASTRITIS [None]
  - ABDOMINAL PAIN [None]
  - HEPATOBILIARY SCAN ABNORMAL [None]
